FAERS Safety Report 7754353-7 (Version None)
Quarter: 2011Q3

REPORT INFORMATION
  Report Type: 
  Country: None (occurrence: None)
  Receive Date: 20110915
  Receipt Date: 20110712
  Transmission Date: 20111222
  Serious: Yes (Other)
  Sender: FDA-Public Use
  Company Number: PHHY2011KR62596

PATIENT

DRUGS (9)
  1. TEGRETOL [Suspect]
     Dosage: 200 MG, BID
     Dates: start: 20100519
  2. MOTILIUM-M [Concomitant]
     Dosage: UNK UKN, UNK
  3. DEPAS [Concomitant]
     Dosage: 500 MG, UNK
  4. MAGNESIUM OXIDE [Concomitant]
     Dosage: 250 MG, UNK
  5. LYRICA [Concomitant]
     Dosage: 150 MG, UNK
  6. STILLEN [Concomitant]
     Dosage: UNK UKN, UNK
  7. OXYCONTIN [Concomitant]
     Dosage: 20 MG, UNK
  8. TEGRETOL [Suspect]
     Indication: POST HERPETIC NEURALGIA
     Dosage: 200 MG, UNK
     Dates: start: 20100513
  9. ZOLPIDEM [Concomitant]
     Dosage: 12.5 MG, UNK

REACTIONS (5)
  - DELIRIUM [None]
  - DEPRESSED LEVEL OF CONSCIOUSNESS [None]
  - PNEUMONIA [None]
  - ASTHENIA [None]
  - TREMOR [None]
